FAERS Safety Report 4587567-8 (Version None)
Quarter: 2005Q1

REPORT INFORMATION
  Report Type: 
  Country: None (occurrence: None)
  Receive Date: 20050125
  Receipt Date: 20040913
  Transmission Date: 20050727
  Serious: No
  Sender: FDA-Public Use
  Company Number: USA040978129

PATIENT
  Age: 58 Year
  Sex: Female

DRUGS (2)
  1. FORTEO [Suspect]
     Indication: OSTEOPOROSIS
     Dates: start: 20040827
  2. ACTONEL [Concomitant]

REACTIONS (4)
  - BACK PAIN [None]
  - BONE PAIN [None]
  - CHEST WALL PAIN [None]
  - MYALGIA [None]
